FAERS Safety Report 7309025-X (Version None)
Quarter: 2011Q1

REPORT INFORMATION
  Report Type: 
  Country: None (occurrence: None)
  Receive Date: 20110223
  Receipt Date: 20110208
  Transmission Date: 20110831
  Serious: Yes (Other)
  Sender: FDA-Public Use
  Company Number: US-BAYER-2011-016722

PATIENT
  Sex: Female

DRUGS (3)
  1. YASMIN [Suspect]
     Indication: CONTRACEPTION
     Dosage: UNK
     Route: 048
     Dates: start: 20050301, end: 20060801
  2. MOTRIN [Concomitant]
  3. ADVIL LIQUI-GELS [Concomitant]

REACTIONS (4)
  - CHOLECYSTITIS [None]
  - BILIARY DYSKINESIA [None]
  - PAIN [None]
  - GALLBLADDER CHOLESTEROLOSIS [None]
